FAERS Safety Report 8936195 (Version 1)
Quarter: 2012Q4

REPORT INFORMATION
  Report Type: 
  Country: PT (occurrence: PT)
  Receive Date: 20121130
  Receipt Date: 20121130
  Transmission Date: 20130627
  Serious: Yes (Other)
  Sender: FDA-Public Use
  Company Number: PT-BAYER-2012-125280

PATIENT
  Age: 61 Year
  Sex: Female
  Weight: 60 kg

DRUGS (1)
  1. GADOVIST [Suspect]
     Indication: IMAGING PROCEDURE
     Dosage: 6 ml, QD
     Route: 042
     Dates: start: 20121113, end: 20121113

REACTIONS (1)
  - Eczema [Recovered/Resolved]
